FAERS Safety Report 7437979-X (Version None)
Quarter: 2011Q2

REPORT INFORMATION
  Report Type: 
  Country: None (occurrence: None)
  Receive Date: 20110426
  Receipt Date: 20110422
  Transmission Date: 20111010
  Serious: Yes (Hospitalization)
  Sender: FDA-Public Use
  Company Number: JP-PFIZER INC-2011073490

PATIENT
  Age: 14 Month
  Sex: Male

DRUGS (1)
  1. ALDACTONE [Suspect]
     Dosage: UNK
     Route: 048
     Dates: start: 20110401, end: 20110401

REACTIONS (3)
  - BLOOD PRESSURE DECREASED [None]
  - POLYURIA [None]
  - ACCIDENTAL EXPOSURE [None]
